FAERS Safety Report 6847432-X (Version None)
Quarter: 2010Q3

REPORT INFORMATION
  Report Type: 
  Country: None (occurrence: None)
  Receive Date: 20100713
  Receipt Date: 20100628
  Transmission Date: 20110219
  Serious: Yes (Hospitalization)
  Sender: FDA-Public Use
  Company Number: 1000014979

PATIENT
  Age: 84 Year
  Sex: Female

DRUGS (8)
  1. ESCITALOPRAM [Suspect]
     Dosage: 1 DOSAGE FORMS (1 DOSAGE FORMS, 1 IN 1 D), ORAL
     Route: 048
     Dates: end: 20100607
  2. PREVISCAN (TABLETS) [Suspect]
     Dosage: 20 MG (20 MG, 1 IN 1 D), ORAL
     Route: 048
     Dates: end: 20100607
  3. KARDEGIC (POWDER) [Suspect]
     Dosage: 75 MG (75 MG, 1 IN 1 D), ORAL
     Route: 048
     Dates: start: 20100301, end: 20100607
  4. HEMIGOXINE [Concomitant]
  5. CANDESARTAN CILEXETIL [Concomitant]
  6. NEXIUM [Concomitant]
  7. VASTAREL [Concomitant]
  8. LORAZEPAM [Concomitant]

REACTIONS (7)
  - ANAEMIA [None]
  - FALL [None]
  - FRACTURED ISCHIUM [None]
  - HAEMATOMA [None]
  - HAEMORRHAGE [None]
  - PUBIS FRACTURE [None]
  - RESPIRATORY DISTRESS [None]
